FAERS Safety Report 20382084 (Version 1)
Quarter: 2022Q1

REPORT INFORMATION
  Report Type: Spontaneous
  Country: FR (occurrence: FR)
  Receive Date: 20220127
  Receipt Date: 20220127
  Transmission Date: 20220423
  Serious: Yes (Hospitalization)
  Sender: FDA-Public Use
  Company Number: None

PATIENT
  Age: 56 Year
  Sex: Female

DRUGS (1)
  1. RISPERIDONE [Suspect]
     Active Substance: RISPERIDONE
     Indication: Delusional disorder, unspecified type
     Dosage: 4 MG
     Route: 048
     Dates: start: 202107, end: 20211118

REACTIONS (4)
  - Akathisia [Recovering/Resolving]
  - Salivary hypersecretion [Recovered/Resolved]
  - Diabetes mellitus inadequate control [Recovering/Resolving]
  - Incontinence [Recovered/Resolved]

NARRATIVE: CASE EVENT DATE: 20210801
